FAERS Safety Report 6690832-1 (Version None)
Quarter: 2010Q2

REPORT INFORMATION
  Report Type: 
  Country: None (occurrence: None)
  Receive Date: 20100421
  Receipt Date: 20100406
  Transmission Date: 20101027
  Serious: Yes (Other)
  Sender: FDA-Public Use
  Company Number: DE-GENENTECH-299627

PATIENT
  Age: 66 Year
  Sex: Female

DRUGS (2)
  1. LUCENTIS [Suspect]
     Indication: CHOROIDAL NEOVASCULARISATION
     Dosage: UNK
     Route: 031
     Dates: start: 20090201
  2. LUCENTIS [Suspect]
     Dosage: UNK
     Route: 031
     Dates: start: 20090701

REACTIONS (4)
  - CATARACT [None]
  - RETINAL EXUDATES [None]
  - RETINAL OEDEMA [None]
  - VISUAL ACUITY REDUCED [None]
